FAERS Safety Report 16903542 (Version 1)
Quarter: 2019Q4

REPORT INFORMATION
  Report Type: Spontaneous
  Country: AE (occurrence: AE)
  Receive Date: 20191010
  Receipt Date: 20191010
  Transmission Date: 20200122
  Serious: Yes (Other)
  Sender: FDA-Public Use
  Company Number: AE-MYLANLABS-2019M1095057

PATIENT
  Sex: Female

DRUGS (4)
  1. CISPLATIN. [Suspect]
     Active Substance: CISPLATIN
     Indication: HEPATOBLASTOMA
     Dosage: EVERY 21 DAYS OVER SIX CYCLES OF CHEMOTHERAPY
     Route: 065
  2. DOXORUBICIN [Suspect]
     Active Substance: DOXORUBICIN
     Indication: HEPATOBLASTOMA
     Dosage: EVERY 21 DAYS OVER SIX CYCLES OF CHEMOTHERAPY
     Route: 065
  3. VINCRISTINE [Suspect]
     Active Substance: VINCRISTINE
     Indication: HEPATOBLASTOMA
     Dosage: EVERY 21 DAYS OVER SIX CYCLES OF CHEMOTHERAPY
     Route: 065
  4. FLUOROURACIL. [Suspect]
     Active Substance: FLUOROURACIL
     Indication: HEPATOBLASTOMA
     Dosage: EVERY 21 DAYS OVER SIX CYCLES OF CHEMOTHERAPY
     Route: 065

REACTIONS (1)
  - Febrile neutropenia [Unknown]
